FAERS Safety Report 14693395 (Version 3)
Quarter: 2018Q3

REPORT INFORMATION
  Report Type: Spontaneous
  Country: US (occurrence: US)
  Receive Date: 20180329
  Receipt Date: 20180919
  Transmission Date: 20181010
  Serious: Yes (Hospitalization, Other)
  Sender: FDA-Public Use
  Company Number: US-JNJFOC-20180335027

PATIENT
  Age: 56 Year
  Sex: Male

DRUGS (2)
  1. INVOKANA [Suspect]
     Active Substance: CANAGLIFLOZIN
     Indication: TYPE 2 DIABETES MELLITUS
     Route: 048
     Dates: start: 201711
  2. INVOKANA [Suspect]
     Active Substance: CANAGLIFLOZIN
     Indication: TYPE 2 DIABETES MELLITUS
     Route: 048
     Dates: start: 20150422, end: 20171119

REACTIONS (7)
  - Amputation [Unknown]
  - Diabetic foot infection [Unknown]
  - Osteomyelitis [Unknown]
  - Diabetic foot [Not Recovered/Not Resolved]
  - Cellulitis [Unknown]
  - Sepsis [Recovered/Resolved]
  - Staphylococcus test [Unknown]

NARRATIVE: CASE EVENT DATE: 20151123
